FAERS Safety Report 4532667-1 (Version None)
Quarter: 2004Q4

REPORT INFORMATION
  Report Type: 
  Country: None (occurrence: None)
  Receive Date: 20041220
  Receipt Date: 20041220
  Transmission Date: 20050328
  Serious: Yes (Hospitalization)
  Sender: FDA-Public Use
  Company Number: None

PATIENT
  Age: 25 Year
  Sex: Male
  Weight: 87 kg

DRUGS (11)
  1. CISPLATIN [Suspect]
     Indication: BONE SARCOMA
     Dosage: 210 MG IV X 1 DAY
     Route: 042
     Dates: start: 20030707
  2. CISPLATIN [Suspect]
     Indication: BONE SARCOMA
     Dosage: 210 MG IV X 1 DAY
     Route: 042
     Dates: start: 20030728
  3. CISPLATIN [Suspect]
     Indication: BONE SARCOMA
     Dosage: 210 MG IV X 1 DAY
     Route: 042
     Dates: start: 20030818
  4. IFOSFAMIDE [Suspect]
     Indication: BONE SARCOMA
     Dosage: 5000 MG IV QD X 3 DAYS
     Route: 042
     Dates: start: 20031020, end: 20031022
  5. IFOSFAMIDE [Suspect]
     Indication: BONE SARCOMA
     Dosage: 5000 MG IV QD X 3 DAYS
     Route: 042
     Dates: start: 20031110, end: 20031112
  6. IFOSFAMIDE [Suspect]
     Indication: BONE SARCOMA
     Dosage: 5000 MG IV QD X 3 DAYS
     Route: 042
     Dates: start: 20031202, end: 20031204
  7. DOXORUBICIN HYDROCHLORIDE [Concomitant]
  8. MESNA [Concomitant]
  9. KYTRIL [Concomitant]
  10. DECADRON [Concomitant]
  11. LORAZEPAM [Concomitant]

REACTIONS (2)
  - DIALYSIS [None]
  - RENAL FAILURE [None]
